FAERS Safety Report 6234410-7 (Version None)
Quarter: 2009Q2

REPORT INFORMATION
  Report Type: 
  Country: None (occurrence: None)
  Receive Date: 20090618
  Receipt Date: 20090608
  Transmission Date: 20091009
  Serious: Yes (Hospitalization, Other)
  Sender: FDA-Public Use
  Company Number: DE-ROCHE-637060

PATIENT
  Age: 54 Year
  Sex: Female

DRUGS (7)
  1. INTERFERON ALFA-2A [Suspect]
     Dosage: INDUCTION THERAPY
     Route: 058
  2. INTERFERON ALFA-2A [Suspect]
     Route: 058
  3. RIBAVIRIN [Suspect]
     Dosage: INDUCTION THERAPY
     Route: 065
  4. RIBAVIRIN [Suspect]
     Dosage: MAINTENANCE THERAPY
     Route: 065
  5. PEG-INTERFERON A-2A (RO 25-8310) [Suspect]
     Dosage: MAINTENANCE THERAPY
     Route: 058
  6. AMANTADINE HCL [Suspect]
     Dosage: INDUCTION THERAPY
     Route: 065
  7. AMANTADINE HCL [Suspect]
     Dosage: MAINTENANCE THERAPY
     Route: 065

REACTIONS (3)
  - OPTIC ATROPHY [None]
  - OPTIC NEUROPATHY [None]
  - POLYNEUROPATHY [None]
